FAERS Safety Report 18655530 (Version 1)
Quarter: 2020Q4

REPORT INFORMATION
  Report Type: Spontaneous
  Country: US (occurrence: US)
  Receive Date: 20201223
  Receipt Date: 20201223
  Transmission Date: 20210114
  Serious: Yes (Other)
  Sender: FDA-Public Use
  Company Number: US-COOPERSURGICAL, INC.-US-2020CPS000037

PATIENT
  Age: 43 Year
  Sex: Female
  Weight: 69.6 kg

DRUGS (3)
  1. METFORMIN [Concomitant]
     Active Substance: METFORMIN HYDROCHLORIDE
     Indication: TYPE 2 DIABETES MELLITUS
     Dosage: 12.5 MG, BID
     Route: 065
     Dates: start: 2008
  2. LISINOPRIL. [Concomitant]
     Active Substance: LISINOPRIL
     Indication: HYPERTENSION
     Dosage: UNK
     Route: 065
  3. PARAGARD T 380A [Suspect]
     Active Substance: COPPER
     Indication: CONTRACEPTION
     Dosage: UNK
     Route: 015

REACTIONS (13)
  - Complication of device removal [Not Recovered/Not Resolved]
  - Vomiting [Recovered/Resolved]
  - Device expulsion [Recovered/Resolved]
  - Haemoglobin increased [Unknown]
  - Dysfunctional uterine bleeding [Unknown]
  - Device breakage [Not Recovered/Not Resolved]
  - Nausea [Unknown]
  - Red blood cell count increased [Unknown]
  - Pelvic pain [Unknown]
  - Foreign body in reproductive tract [Not Recovered/Not Resolved]
  - Haematocrit increased [Unknown]
  - Flank pain [Unknown]
  - White blood cell count increased [Unknown]

NARRATIVE: CASE EVENT DATE: 20191227
